FAERS Safety Report 16729083 (Version 9)
Quarter: 2021Q1

REPORT INFORMATION
  Report Type: Spontaneous
  Country: US (occurrence: US)
  Receive Date: 20190822
  Receipt Date: 20210108
  Transmission Date: 20210419
  Serious: Yes (Other)
  Sender: FDA-Public Use
  Company Number: US-PFIZER INC-2019360936

PATIENT
  Age: 76 Year
  Sex: Female

DRUGS (1)
  1. LYRICA [Suspect]
     Active Substance: PREGABALIN
     Dosage: UNK

REACTIONS (28)
  - Intervertebral disc disorder [Unknown]
  - Limb discomfort [Unknown]
  - Foot deformity [Unknown]
  - Back injury [Unknown]
  - Cataract [Unknown]
  - Asthma [Not Recovered/Not Resolved]
  - Hypersensitivity [Not Recovered/Not Resolved]
  - Back disorder [Unknown]
  - Paranasal sinus hypersecretion [Unknown]
  - Diabetes mellitus [Unknown]
  - Cough [Unknown]
  - Ligament sprain [Unknown]
  - Nerve compression [Unknown]
  - Back pain [Unknown]
  - Brain neoplasm [Unknown]
  - Dysgraphia [Unknown]
  - Pain [Unknown]
  - Fall [Unknown]
  - Tremor [Unknown]
  - Illness [Unknown]
  - Fatigue [Unknown]
  - Loss of personal independence in daily activities [Unknown]
  - Pelvic bone injury [Unknown]
  - Neoplasm [Unknown]
  - Bronchial disorder [Unknown]
  - Lacrimation increased [Unknown]
  - Arthritis [Unknown]
  - Joint injury [Unknown]
